FAERS Safety Report 5486742-8 (Version None)
Quarter: 2007Q4

REPORT INFORMATION
  Report Type: 
  Country: None (occurrence: None)
  Receive Date: 20071012
  Receipt Date: 20071012
  Transmission Date: 20080405
  Serious: Yes (Hospitalization)
  Sender: FDA-Public Use
  Company Number: None

PATIENT
  Age: 58 Year
  Sex: Male
  Weight: 90.7 kg

DRUGS (1)
  1. REMICADE [Suspect]
     Indication: HEPATITIS ALCOHOLIC
     Dosage: 5MG/KG X1 IV
     Route: 042
     Dates: start: 20070426

REACTIONS (2)
  - FLUID OVERLOAD [None]
  - RENAL FAILURE ACUTE [None]
